FAERS Safety Report 6974356-X (Version None)
Quarter: 2010Q3

REPORT INFORMATION
  Report Type: 
  Country: None (occurrence: None)
  Receive Date: 20100909
  Receipt Date: 20100826
  Transmission Date: 20110219
  Serious: Yes (Hospitalization)
  Sender: FDA-Public Use
  Company Number: US-WATSON-2010-11652

PATIENT
  Age: 54 Year
  Sex: Female

DRUGS (3)
  1. LORAZEPAM [Suspect]
     Indication: AGITATION
     Dosage: 1 MG IM OR PO EVERY 1 HOUR PRN
     Route: 048
  2. RISPERIDONE [Suspect]
     Indication: AGITATION
     Dosage: 1 MB BID AND Q 1 HR PRN
     Route: 048
  3. HALOPERIDOL LACTATE [Suspect]
     Indication: AGITATION
     Dosage: 5 MG EVERY 1 HOUR PRN
     Route: 030

REACTIONS (1)
  - NEUROLEPTIC MALIGNANT SYNDROME [None]
